FAERS Safety Report 5690978-0 (Version None)
Quarter: 2008Q2

REPORT INFORMATION
  Report Type: 
  Country: None (occurrence: None)
  Receive Date: 20080401
  Receipt Date: 20080325
  Transmission Date: 20081010
  Serious: Yes (Other)
  Sender: FDA-Public Use
  Company Number: US-ELI_LILLY_AND_COMPANY-US200803005899

PATIENT
  Sex: Female

DRUGS (9)
  1. BYETTA [Suspect]
     Dosage: 5 UG, 2/D
     Route: 058
     Dates: start: 20070101, end: 20070101
  2. BYETTA [Suspect]
     Dosage: 10 UG, 2/D
     Route: 058
     Dates: start: 20070101, end: 20070101
  3. BYETTA [Suspect]
     Dosage: 5 UG, 2/D
     Route: 058
     Dates: start: 20070101, end: 20070101
  4. BYETTA [Suspect]
     Dosage: 10 UG, 2/D
     Route: 058
     Dates: start: 20070101
  5. TENORMIN [Concomitant]
     Indication: BLOOD PRESSURE INCREASED
     Dosage: 50 MG, DAILY (1/D)
     Route: 048
  6. METFORMIN HCL [Concomitant]
     Dosage: 500 MG, 2/D
     Route: 048
     Dates: start: 20060101
  7. SYNTHROID [Concomitant]
     Indication: THYROID DISORDER
     Dates: start: 20040101
  8. LISINOPRIL [Concomitant]
     Indication: RENAL DISORDER
     Dates: start: 20060101
  9. SIMVASTATIN [Concomitant]
     Indication: BLOOD TRIGLYCERIDES INCREASED
     Dates: start: 20070901

REACTIONS (4)
  - BLINDNESS UNILATERAL [None]
  - FATIGUE [None]
  - HEADACHE [None]
  - OCULAR VASCULAR DISORDER [None]
